FAERS Safety Report 4825595-5 (Version None)
Quarter: 2005Q4

REPORT INFORMATION
  Report Type: 
  Country: None (occurrence: None)
  Receive Date: 20051111
  Receipt Date: 20051005
  Transmission Date: 20060501
  Serious: No
  Sender: FDA-Public Use
  Company Number: US-GLAXOSMITHKLINE-A0577175A

PATIENT
  Age: 68 Year
  Sex: Male

DRUGS (13)
  1. AVODART [Suspect]
     Indication: BENIGN PROSTATIC HYPERPLASIA
     Route: 048
     Dates: start: 20050726
  2. KLOR-CON [Concomitant]
  3. LASIX [Concomitant]
  4. CALCIUM GLUCONATE [Concomitant]
  5. ASCORBIC ACID [Concomitant]
  6. DILANTIN [Concomitant]
  7. FLOMAX [Concomitant]
  8. PROTONIX [Concomitant]
  9. ALBUTEROL [Concomitant]
  10. IPRATROPIUM BROMIDE [Concomitant]
  11. DETROL LA [Concomitant]
  12. CHLORAZEPAM [Concomitant]
  13. CITRATE OF MAGNESIA [Concomitant]

REACTIONS (4)
  - CHROMATURIA [None]
  - THERAPEUTIC RESPONSE UNEXPECTED [None]
  - URINE FLOW DECREASED [None]
  - URINE OUTPUT DECREASED [None]
